FAERS Safety Report 23434974 (Version 1)
Quarter: 2024Q1

REPORT INFORMATION
  Report Type: Spontaneous
  Country: US (occurrence: US)
  Receive Date: 20240123
  Receipt Date: 20240123
  Transmission Date: 20240410
  Serious: No
  Sender: FDA-Public Use
  Company Number: US-NOVOPROD-1091666

PATIENT
  Age: 52 Year
  Sex: Female

DRUGS (1)
  1. WEGOVY [Suspect]
     Active Substance: SEMAGLUTIDE
     Indication: Weight control
     Dosage: QW
     Route: 058
     Dates: start: 20230629, end: 20230629

REACTIONS (7)
  - Blood pressure increased [Not Recovered/Not Resolved]
  - Hyperhidrosis [Recovered/Resolved]
  - Muscle spasms [Not Recovered/Not Resolved]
  - Vomiting [Recovered/Resolved]
  - Headache [Not Recovered/Not Resolved]
  - Dizziness [Recovered/Resolved]
  - Abdominal pain upper [Not Recovered/Not Resolved]

NARRATIVE: CASE EVENT DATE: 20230629
